FAERS Safety Report 17091616 (Version 2)
Quarter: 2020Q1

REPORT INFORMATION
  Report Type: Spontaneous
  Country: FR (occurrence: FR)
  Receive Date: 20191129
  Receipt Date: 20200116
  Transmission Date: 20200409
  Serious: Yes (Hospitalization, Other)
  Sender: FDA-Public Use
  Company Number: ALC2019FR001697

PATIENT

DRUGS (2)
  1. TETRACAINE HYDROCHLORIDE. [Suspect]
     Active Substance: TETRACAINE HYDROCHLORIDE
     Indication: CATARACT OPERATION
     Dosage: 1 GTT (EVER)
     Route: 047
  2. MYDRIASERT [Suspect]
     Active Substance: PHENYLEPHRINE HYDROCHLORIDE\TROPICAMIDE
     Indication: PREOPERATIVE CARE
     Dosage: UNK

REACTIONS (2)
  - Corneal oedema [Recovered/Resolved]
  - Inappropriate schedule of product administration [Unknown]
